APPROVED DRUG PRODUCT: METOCLOPRAMIDE HYDROCHLORIDE
Active Ingredient: METOCLOPRAMIDE HYDROCHLORIDE
Strength: EQ 10MG BASE/2ML
Dosage Form/Route: INJECTABLE;INJECTION
Application: A070622 | Product #001
Applicant: SMITH AND NEPHEW SOLOPAK DIV SMITH AND NEPHEW
Approved: Mar 2, 1987 | RLD: No | RS: No | Type: DISCN